FAERS Safety Report 6804495-5 (Version None)
Quarter: 2010Q2

REPORT INFORMATION
  Report Type: 
  Country: None (occurrence: None)
  Receive Date: 20100628
  Receipt Date: 20070404
  Transmission Date: 20101027
  Serious: No
  Sender: FDA-Public Use
  Company Number: US-PFIZER INC-2007028259

PATIENT
  Sex: Female
  Weight: 65.8 kg

DRUGS (10)
  1. SOMAVERT [Suspect]
     Indication: ACROMEGALY
     Dates: start: 20030101
  2. ZOCOR [Concomitant]
  3. ZOLOFT [Concomitant]
  4. LOPRESSOR [Concomitant]
  5. WARFARIN [Concomitant]
  6. WARFARIN [Concomitant]
  7. PROCARDIA [Concomitant]
  8. DILTIAZEM [Concomitant]
  9. SYNTHROID [Concomitant]
  10. ALTACE [Concomitant]

REACTIONS (1)
  - WEIGHT INCREASED [None]
